FAERS Safety Report 18963430 (Version 1)
Quarter: 2021Q1

REPORT INFORMATION
  Report Type: Spontaneous
  Country: US (occurrence: US)
  Receive Date: 20210303
  Receipt Date: 20210303
  Transmission Date: 20210420
  Serious: No
  Sender: FDA-Public Use
  Company Number: US-BAYER-2021-083758

PATIENT
  Age: 20 Year
  Sex: Female

DRUGS (1)
  1. NEXAVAR [Suspect]
     Active Substance: SORAFENIB
     Indication: DESMOID TUMOUR
     Dosage: UNK

REACTIONS (5)
  - Rash vesicular [None]
  - Product use in unapproved indication [None]
  - Off label use [None]
  - Blood blister [None]
  - General symptom [None]
